FAERS Safety Report 5949079-6 (Version None)
Quarter: 2008Q4

REPORT INFORMATION
  Report Type: 
  Country: None (occurrence: None)
  Receive Date: 20081111
  Receipt Date: 20081103
  Transmission Date: 20090506
  Serious: Yes (Hospitalization)
  Sender: FDA-Public Use
  Company Number: DE-ROCHE-595780

PATIENT
  Sex: Male
  Weight: 81 kg

DRUGS (4)
  1. DIAZEPAM [Suspect]
     Indication: DRUG USE FOR UNKNOWN INDICATION
     Dosage: DOSE: SINGLE DOSE DIFFERENT 125 MG 1 DAY
     Route: 048
     Dates: start: 20080522
  2. ABILIFY [Suspect]
     Dosage: STRENGTH: 10/15/30 MG, DOSE: SINGLE DOSE DIFFERENT 235 MG 1 DAY
     Route: 048
     Dates: start: 20080522, end: 20080531
  3. AKINETON [Concomitant]
     Dosage: DOSE^ 1X1 PROLONGED RELEASE TABLET AT 4 MG DAILY^ [8 MG{4 MG, 1DAY}]
     Dates: start: 20080527, end: 20080528
  4. RISPERDAL [Concomitant]
     Dosage: DOSE: SIGLE DOSE DIFFERENT
     Route: 048
     Dates: start: 20080529, end: 20080603

REACTIONS (2)
  - HEPATITIS ACUTE [None]
  - TRANSAMINASES INCREASED [None]
